FAERS Safety Report 6250091-0 (Version None)
Quarter: 2009Q2

REPORT INFORMATION
  Report Type: 
  Country: None (occurrence: None)
  Receive Date: 20090625
  Receipt Date: 20090612
  Transmission Date: 20091009
  Serious: Yes (Life-Threatening, Hospitalization)
  Sender: FDA-Public Use
  Company Number: DSU-2009-01188

PATIENT
  Age: 65 Year
  Sex: Male

DRUGS (2)
  1. SEVICAR (OLMESARTAN / AMLODIPINE) (TABLET) [Suspect]
     Indication: HYPERTENSION
     Dosage: 20/5 MG (QHS), PER ORAL
     Route: 048
     Dates: start: 20090602, end: 20090602
  2. TRIATEC (RAMIPRIL) - (RAMIPRIL) [Concomitant]

REACTIONS (5)
  - ANAPHYLACTIC REACTION [None]
  - CYANOSIS [None]
  - DISCOMFORT [None]
  - SYNCOPE [None]
  - UPPER AIRWAY OBSTRUCTION [None]
